FAERS Safety Report 13798236 (Version 12)
Quarter: 2019Q1

REPORT INFORMATION
  Report Type: Report from Study
  Country: GB (occurrence: GB)
  Receive Date: 20170727
  Receipt Date: 20190212
  Transmission Date: 20190417
  Serious: Yes (Death, Hospitalization, Other)
  Sender: FDA-Public Use
  Company Number: GB-ROCHE-1648131

PATIENT
  Age: 78 Year
  Sex: Male

DRUGS (3)
  1. ESBRIET [Interacting]
     Active Substance: PIRFENIDONE
     Route: 048
     Dates: start: 20140303
  2. ESBRIET [Suspect]
     Active Substance: PIRFENIDONE
     Indication: IDIOPATHIC PULMONARY FIBROSIS
     Route: 048
     Dates: start: 20140902
  3. ESBRIET [Interacting]
     Active Substance: PIRFENIDONE
     Route: 048
     Dates: start: 20140401

REACTIONS (26)
  - Death [Fatal]
  - Hiatus hernia [Unknown]
  - Chest discomfort [Unknown]
  - Productive cough [Unknown]
  - General physical health deterioration [Unknown]
  - Cough [Not Recovered/Not Resolved]
  - Food aversion [Not Recovered/Not Resolved]
  - Fatigue [Unknown]
  - Condition aggravated [Unknown]
  - Infection [Not Recovered/Not Resolved]
  - Muscle strain [Unknown]
  - Oxygen saturation decreased [Unknown]
  - Pulmonary hypertension [Unknown]
  - Drug interaction [Unknown]
  - Dyspepsia [Unknown]
  - Muscle atrophy [Unknown]
  - Pulmonary function test decreased [Not Recovered/Not Resolved]
  - Sputum increased [Unknown]
  - Weight decreased [Not Recovered/Not Resolved]
  - Asthenia [Not Recovered/Not Resolved]
  - Decreased appetite [Not Recovered/Not Resolved]
  - Photosensitivity reaction [Unknown]
  - Choking [Unknown]
  - Palpitations [Not Recovered/Not Resolved]
  - Lower respiratory tract infection [Unknown]
  - Dyspnoea [Unknown]

NARRATIVE: CASE EVENT DATE: 20170724
